FAERS Safety Report 13762185 (Version 1)
Quarter: 2017Q3

REPORT INFORMATION
  Report Type: Report from Study
  Country: US (occurrence: US)
  Receive Date: 20170718
  Receipt Date: 20170718
  Transmission Date: 20171127
  Serious: Yes (Hospitalization)
  Sender: FDA-Public Use
  Company Number: US-ROCHE-1567309

PATIENT
  Age: 57 Year
  Sex: Female
  Weight: 55.15 kg

DRUGS (7)
  1. ATEZOLIZUMAB. [Suspect]
     Active Substance: ATEZOLIZUMAB
     Indication: LUNG SQUAMOUS CELL CARCINOMA STAGE IV
     Dosage: MOST RECENT DOSE OF MPDL3280A PRIOR TO AE ONSET WAS 1200 MG ADMINISTERED ON 13/APR/2015
     Route: 042
     Dates: start: 20150324, end: 20150518
  2. LIPITOR [Concomitant]
     Active Substance: ATORVASTATIN CALCIUM
     Indication: BLOOD CHOLESTEROL INCREASED
     Route: 048
     Dates: start: 20150101
  3. ADVIL [Concomitant]
     Active Substance: IBUPROFEN
     Indication: BACK PAIN
  4. ADVIL [Concomitant]
     Active Substance: IBUPROFEN
     Indication: MUSCLE SPASMS
  5. CARBOPLATIN. [Suspect]
     Active Substance: CARBOPLATIN
     Indication: LUNG SQUAMOUS CELL CARCINOMA STAGE IV
     Dosage: MOST RECENT DOSE OF CARBOPLATIN PRIOR TO AE ONSET WAS 570 (UNIT NOT PROVIDED) ADMINISTERED ON 13/AP
     Route: 042
     Dates: start: 20150324, end: 20150518
  6. PACLITAXEL. [Suspect]
     Active Substance: PACLITAXEL
     Indication: LUNG SQUAMOUS CELL CARCINOMA STAGE IV
     Dosage: MOST RECENT DOSE OF PACLITAXEL PRIOR TO AE ONSET WAS 318 (UNIT NOT PROVIDED) ADMINISTERED ON 13/APR/
     Route: 042
     Dates: start: 20150324, end: 20150518
  7. ADVIL [Concomitant]
     Active Substance: IBUPROFEN
     Indication: HEADACHE
     Route: 048
     Dates: start: 20110101

REACTIONS (2)
  - Febrile neutropenia [Recovered/Resolved]
  - Autoimmune haemolytic anaemia [Recovering/Resolving]

NARRATIVE: CASE EVENT DATE: 20150420
